FAERS Safety Report 5502843-X (Version None)
Quarter: 2007Q4

REPORT INFORMATION
  Report Type: 
  Country: None (occurrence: None)
  Receive Date: 20071029
  Receipt Date: 20071022
  Transmission Date: 20080405
  Serious: Yes (Other)
  Sender: FDA-Public Use
  Company Number: 2007SP021568

PATIENT
  Age: 44 Year
  Sex: Male

DRUGS (1)
  1. AFRIN [Suspect]
     Indication: DYSPNOEA
     Dosage: NAS
     Route: 045

REACTIONS (3)
  - DEPENDENCE [None]
  - NASAL DISCOMFORT [None]
  - NASAL ULCER [None]
